FAERS Safety Report 14238722 (Version 1)
Quarter: 2017Q4

REPORT INFORMATION
  Report Type: Spontaneous
  Country: US (occurrence: None)
  Receive Date: 20171129
  Receipt Date: 20171129
  Transmission Date: 20180321
  Serious: No
  Sender: FDA-Public Use
  Company Number: None

PATIENT
  Age: 48 Year
  Sex: Female

DRUGS (1)
  1. ENBREL [Suspect]
     Active Substance: ETANERCEPT

REACTIONS (5)
  - Drug dose omission [None]
  - Stress [None]
  - Memory impairment [None]
  - Ankylosing spondylitis [None]
  - Condition aggravated [None]

NARRATIVE: CASE EVENT DATE: 20171108
